FAERS Safety Report 20193946 (Version 1)
Quarter: 2021Q4

REPORT INFORMATION
  Report Type: Spontaneous
  Country: CN (occurrence: None)
  Receive Date: 20211216
  Receipt Date: 20211216
  Transmission Date: 20220303
  Serious: Yes (Hospitalization, Other)
  Sender: FDA-Public Use
  Company Number: 2021A868737

PATIENT
  Age: 27205 Day
  Sex: Male

DRUGS (1)
  1. GEFITINIB [Suspect]
     Active Substance: GEFITINIB
     Indication: Targeted cancer therapy
     Route: 048
     Dates: start: 20211026, end: 20211111

REACTIONS (4)
  - Haematemesis [Recovering/Resolving]
  - Drug resistance [Unknown]
  - Nausea [Recovering/Resolving]
  - Product use issue [Unknown]

NARRATIVE: CASE EVENT DATE: 20211110
